FAERS Safety Report 20351568 (Version 2)
Quarter: 2022Q1

REPORT INFORMATION
  Report Type: Report from Study
  Country: DE (occurrence: DE)
  Receive Date: 20220119
  Receipt Date: 20220202
  Transmission Date: 20220423
  Serious: Yes (Hospitalization)
  Sender: FDA-Public Use
  Company Number: DE-TEVA-2021-DE-1996656

PATIENT
  Sex: Male

DRUGS (13)
  1. CELECOXIB [Suspect]
     Active Substance: CELECOXIB
     Indication: Axial spondyloarthritis
     Dosage: 90 MG, WEEKLY
     Route: 065
     Dates: start: 20160323
  2. ERELZI [Suspect]
     Active Substance: ETANERCEPT-SZZS
     Indication: Axial spondyloarthritis
     Dosage: 50 MG, WEEKLY
     Route: 065
     Dates: start: 20200724, end: 20210128
  3. HYRIMOZ [Suspect]
     Active Substance: ADALIMUMAB-ADAZ
     Indication: Axial spondyloarthritis
     Dosage: 40 MG, CYCLIC (EVERY 2 WEEKS)
     Route: 065
     Dates: start: 20210204
  4. THEOPHYLLINE [Concomitant]
     Active Substance: THEOPHYLLINE
  5. RAMIPRIL [Concomitant]
     Active Substance: RAMIPRIL
  6. TOREMIFENE [Concomitant]
     Active Substance: TOREMIFENE
  7. VALPROATE SODIUM [Concomitant]
     Active Substance: VALPROATE SODIUM
  8. TILIDINE [Concomitant]
     Active Substance: TILIDINE
  9. BISOPROLOL [Concomitant]
     Active Substance: BISOPROLOL
  10. HYDROCHLOROTHIAZIDE [Concomitant]
     Active Substance: HYDROCHLOROTHIAZIDE
  11. PREDNISOLONE [Concomitant]
     Active Substance: PREDNISOLONE
  12. GABAPENTIN [Concomitant]
     Active Substance: GABAPENTIN
  13. METHIMAZOLE [Concomitant]
     Active Substance: METHIMAZOLE

REACTIONS (5)
  - Hemiparesis [Not Recovered/Not Resolved]
  - Axial spondyloarthritis [Not Recovered/Not Resolved]
  - Dysarthria [Not Recovered/Not Resolved]
  - Loss of proprioception [Not Recovered/Not Resolved]
  - Cerebrovascular accident [Not Recovered/Not Resolved]

NARRATIVE: CASE EVENT DATE: 20210115
